FAERS Safety Report 17294371 (Version 3)
Quarter: 2020Q2

REPORT INFORMATION
  Report Type: Report from Study
  Country: US (occurrence: US)
  Receive Date: 20200121
  Receipt Date: 20200603
  Transmission Date: 20200713
  Serious: No
  Sender: FDA-Public Use
  Company Number: US-AGIOS-2001US01620

PATIENT

DRUGS (1)
  1. TIBSOVO [Suspect]
     Active Substance: IVOSIDENIB
     Indication: BRAIN NEOPLASM MALIGNANT
     Dosage: 250MG, 2 TABLETS (500MG) DAILY
     Dates: start: 20200125

REACTIONS (5)
  - Tinnitus [Unknown]
  - Arthralgia [Unknown]
  - Myalgia [Recovered/Resolved]
  - Middle ear effusion [Unknown]
  - Off label use [Unknown]

NARRATIVE: CASE EVENT DATE: 202001
